FAERS Safety Report 4521357-7 (Version None)
Quarter: 2004Q4

REPORT INFORMATION
  Report Type: 
  Country: None (occurrence: None)
  Receive Date: 20041029
  Receipt Date: 20040811
  Transmission Date: 20050328
  Serious: No
  Sender: FDA-Public Use
  Company Number: 2004-119297-NL

PATIENT
  Age: 22 Year
  Sex: Female
  Weight: 90.9 kg

DRUGS (4)
  1. NUVARING [Suspect]
     Indication: CONTRACEPTION
     Dosage: DF DAILY VAGINAL
     Route: 067
     Dates: start: 20030201
  2. VAGINAL ANTIFUNGAL CREAM [Concomitant]
  3. ANTIBIOTIC (UNSPECIFIED SULFA DRUG) [Concomitant]
  4. DIFLUCAN [Concomitant]

REACTIONS (4)
  - DEVICE FAILURE [None]
  - MEDICAL DEVICE DISCOMFORT [None]
  - URINARY TRACT INFECTION [None]
  - VAGINAL MYCOSIS [None]
